FAERS Safety Report 17963903 (Version 1)
Quarter: 2020Q2

REPORT INFORMATION
  Report Type: Spontaneous
  Country: HU (occurrence: HU)
  Receive Date: 20200630
  Receipt Date: 20200630
  Transmission Date: 20200714
  Serious: Yes (Hospitalization, Other)
  Sender: FDA-Public Use
  Company Number: HU-ABBVIE-20K-076-3465591-00

PATIENT
  Age: 74 Year
  Sex: Male

DRUGS (9)
  1. IMBRUVICA [Suspect]
     Active Substance: IBRUTINIB
     Route: 048
  2. ASPIRIN PROTECT [Concomitant]
     Active Substance: ASPIRIN
     Indication: ISCHAEMIC HEART DISEASE PROPHYLAXIS
     Route: 048
     Dates: start: 2010
  3. CHINOPAMIL [Concomitant]
     Indication: HYPERTENSION
     Route: 048
     Dates: start: 2010
  4. IMBRUVICA [Suspect]
     Active Substance: IBRUTINIB
     Route: 048
  5. IMBRUVICA [Suspect]
     Active Substance: IBRUTINIB
     Route: 048
     Dates: start: 201905, end: 202002
  6. FOLSAV [Concomitant]
     Indication: VITAMIN SUPPLEMENTATION
     Route: 048
     Dates: start: 2010
  7. IMBRUVICA [Suspect]
     Active Substance: IBRUTINIB
     Indication: LYMPHOMA
     Route: 048
     Dates: start: 202002, end: 20200608
  8. NOLPAZA [Concomitant]
     Active Substance: PANTOPRAZOLE SODIUM
     Indication: GASTROOESOPHAGEAL REFLUX PROPHYLAXIS
     Route: 048
     Dates: start: 2010
  9. IMBRUVICA [Suspect]
     Active Substance: IBRUTINIB
     Route: 048

REACTIONS (10)
  - Basal cell carcinoma [Recovering/Resolving]
  - Palpitations [Recovering/Resolving]
  - Diarrhoea [Recovering/Resolving]
  - Sinusitis [Recovering/Resolving]
  - Muscle spasms [Recovering/Resolving]
  - Rash [Recovering/Resolving]
  - Contusion [Recovering/Resolving]
  - Onychoclasis [Recovering/Resolving]
  - Aphthous ulcer [Recovering/Resolving]
  - Uvulitis [Recovering/Resolving]

NARRATIVE: CASE EVENT DATE: 201905
